FAERS Safety Report 8776907 (Version 2)
Quarter: 2013Q4

REPORT INFORMATION
  Report Type: Spontaneous
  Country: US (occurrence: US)
  Receive Date: 20120911
  Receipt Date: 20131031
  Transmission Date: 20140711
  Serious: Yes (Death, Hospitalization, Other)
  Sender: FDA-Public Use
  Company Number: US-009507513-1209USA003208

PATIENT
  Age: 53 Year
  Sex: Female

DRUGS (9)
  1. ISENTRESS [Suspect]
     Dosage: 400 MG, BID, ORAL
     Route: 048
  2. PEPCID [Suspect]
     Dosage: 20 MG, QD, ORAL
     Route: 048
  3. NORVASC [Suspect]
     Dosage: 5 MG, QD, ORAL
     Route: 048
  4. PARAPLATIN [Concomitant]
  5. TAXOL [Concomitant]
  6. NASEA [Concomitant]
  7. TOPOTECIN [Concomitant]
  8. DEXART [Concomitant]
  9. EPZICOM [Concomitant]

REACTIONS (12)
  - Cardiac disorder [Fatal]
  - HIV infection [Fatal]
  - Tachycardia [Fatal]
  - Food allergy [Fatal]
  - Cervix carcinoma [Fatal]
  - Seasonal allergy [Fatal]
  - Palpitations [Fatal]
  - Sinus tachycardia [Fatal]
  - Hypertension [Fatal]
  - Ascites [Fatal]
  - Hyperlipidaemia [Fatal]
  - Drug hypersensitivity [Fatal]
